FAERS Safety Report 13088273 (Version 1)
Quarter: 2017Q1

REPORT INFORMATION
  Report Type: Spontaneous
  Country: DE (occurrence: DE)
  Receive Date: 20170105
  Receipt Date: 20170105
  Transmission Date: 20170428
  Serious: Yes (Death, Other)
  Sender: FDA-Public Use
  Company Number: DE-GLAXOSMITHKLINE-DE2016195361

PATIENT
  Sex: Male

DRUGS (1)
  1. NICOTINE POLACRILEX [Suspect]
     Active Substance: NICOTINE
     Indication: SMOKING CESSATION THERAPY
     Dosage: UNK
     Route: 065

REACTIONS (3)
  - Gastric ulcer [Fatal]
  - Cardiovascular disorder [Unknown]
  - Gastric cancer [Fatal]
